FAERS Safety Report 23907747 (Version 1)
Quarter: 2024Q2

REPORT INFORMATION
  Report Type: Spontaneous
  Country: CN (occurrence: CN)
  Receive Date: 20240528
  Receipt Date: 20240528
  Transmission Date: 20240716
  Serious: Yes (Hospitalization)
  Sender: FDA-Public Use
  Company Number: CN-STRIDES ARCOLAB LIMITED-2024SP006105

PATIENT
  Age: 52 Year
  Sex: Female

DRUGS (1)
  1. AMLODIPINE [Suspect]
     Active Substance: AMLODIPINE BESYLATE
     Indication: Product used for unknown indication
     Dosage: UNK
     Route: 065

REACTIONS (6)
  - Liver injury [Recovered/Resolved]
  - Pulmonary hypertension [Recovered/Resolved]
  - Cardiac failure high output [Recovered/Resolved]
  - Shock [Recovered/Resolved]
  - Toxicity to various agents [Unknown]
  - Overdose [Unknown]
